FAERS Safety Report 23611229 (Version 2)
Quarter: 2024Q2

REPORT INFORMATION
  Report Type: Spontaneous
  Country: US (occurrence: US)
  Receive Date: 20240308
  Receipt Date: 20240409
  Transmission Date: 20240715
  Serious: No
  Sender: FDA-Public Use
  Company Number: US-SA-SAC20240304000435

PATIENT
  Age: 42 Year
  Sex: Male
  Weight: 104.3 kg

DRUGS (1)
  1. LUMIZYME [Suspect]
     Active Substance: ALGLUCOSIDASE ALFA
     Indication: Glycogen storage disease type II
     Dosage: 2100 MG, QOW
     Route: 042
     Dates: start: 202310

REACTIONS (4)
  - Weight decreased [Unknown]
  - Malaise [Unknown]
  - Influenza [Unknown]
  - Weight increased [Unknown]

NARRATIVE: CASE EVENT DATE: 20240201
